FAERS Safety Report 22287298 (Version 2)
Quarter: 2023Q2

REPORT INFORMATION
  Report Type: Report from Study
  Country: AR (occurrence: AR)
  Receive Date: 20230505
  Receipt Date: 20230623
  Transmission Date: 20230722
  Serious: Yes (Hospitalization)
  Sender: FDA-Public Use
  Company Number: AR-002147023-NVSC2023AR088887

PATIENT
  Age: 60 Year
  Sex: Female

DRUGS (6)
  1. KISQALI [Suspect]
     Active Substance: RIBOCICLIB
     Indication: Breast cancer metastatic
     Dosage: 600 MG, QD
     Route: 065
     Dates: start: 20211021
  2. KISQALI [Suspect]
     Active Substance: RIBOCICLIB
     Dosage: 200 MG, TID (DAILY) (3 PER DAY FOR 28 DAYS, REST 7 DAYS)
     Route: 065
  3. ZOLEDRONIC ACID [Suspect]
     Active Substance: ZOLEDRONIC ACID
     Indication: Product used for unknown indication
     Dosage: UNK
     Route: 065
  4. LETROZOLE [Concomitant]
     Active Substance: LETROZOLE
     Indication: Breast cancer metastatic
     Dosage: 2.5 MG
     Route: 065
     Dates: start: 20211021
  5. LETROZOLE [Concomitant]
     Active Substance: LETROZOLE
     Dosage: UNK
     Route: 065
     Dates: start: 2022
  6. INSULIN HUMAN [Concomitant]
     Active Substance: INSULIN HUMAN
     Indication: Product used for unknown indication
     Dosage: UNK (NPH)
     Route: 065
     Dates: start: 2021

REACTIONS (10)
  - Skin reaction [Unknown]
  - Hypersensitivity [Unknown]
  - Malaise [Unknown]
  - Pyrexia [Unknown]
  - Myalgia [Unknown]
  - Erythema [Unknown]
  - Pruritus [Unknown]
  - Condition aggravated [Unknown]
  - Influenza [Unknown]
  - Catarrh [Unknown]

NARRATIVE: CASE EVENT DATE: 20230301
